FAERS Safety Report 4358429-6 (Version None)
Quarter: 2004Q2

REPORT INFORMATION
  Report Type: 
  Country: None (occurrence: None)
  Receive Date: 20040514
  Receipt Date: 20040430
  Transmission Date: 20050107
  Serious: Yes (Life-Threatening, Hospitalization)
  Sender: FDA-Public Use
  Company Number: JP-ROCHE-366126

PATIENT
  Age: 66 Year
  Sex: Male
  Weight: 64 kg

DRUGS (4)
  1. PANALDINE [Suspect]
     Indication: ANGINA PECTORIS
     Route: 048
     Dates: start: 20031202, end: 20040408
  2. LIPITOR [Suspect]
     Indication: HYPERLIPIDAEMIA
     Route: 048
     Dates: start: 20031202, end: 20040408
  3. AMLODIPINE [Concomitant]
     Indication: HYPERTENSION
     Dosage: TAKEN FOR MORE THAN 40 YEARS.
     Route: 048
  4. RENIVACE [Concomitant]
     Indication: HYPERTENSION
     Dosage: TAKEN FOR MORE THAN 40 YEARS.
     Route: 048

REACTIONS (12)
  - ABASIA [None]
  - ALANINE AMINOTRANSFERASE INCREASED [None]
  - ASPARTATE AMINOTRANSFERASE INCREASED [None]
  - BLOOD ALKALINE PHOSPHATASE INCREASED [None]
  - BLOOD CREATINE PHOSPHOKINASE INCREASED [None]
  - HEPATIC FUNCTION ABNORMAL [None]
  - MYOSITIS [None]
  - PRURITUS GENERALISED [None]
  - PYREXIA [None]
  - RASH [None]
  - RASH PAPULAR [None]
  - RENAL IMPAIRMENT [None]
